FAERS Safety Report 22362263 (Version 3)
Quarter: 2023Q2

REPORT INFORMATION
  Report Type: Spontaneous
  Country: IN (occurrence: IN)
  Receive Date: 20230524
  Receipt Date: 20230622
  Transmission Date: 20230721
  Serious: Yes (Death, Other)
  Sender: FDA-Public Use
  Company Number: IN-PFIZER INC-2019523522

PATIENT
  Age: 77 Year
  Sex: Female
  Weight: 78 kg

DRUGS (8)
  1. PALBOCICLIB [Suspect]
     Active Substance: PALBOCICLIB
     Indication: Breast cancer metastatic
     Dosage: 125 MG, 1X/DAY
     Route: 048
     Dates: start: 20190618
  2. PALBOCICLIB [Suspect]
     Active Substance: PALBOCICLIB
     Dosage: 100 MG, UNK
  3. PALBOCICLIB [Suspect]
     Active Substance: PALBOCICLIB
     Dosage: 75 MG, UNK
  4. PALBOCICLIB [Suspect]
     Active Substance: PALBOCICLIB
     Dosage: 75 MG, CYCLIC (0-1-0 FOR 21 DAYS, WITH FOOD/ AFTER LUNCH)
     Route: 048
     Dates: start: 20210226
  5. PALBOCICLIB [Suspect]
     Active Substance: PALBOCICLIB
     Dosage: 75 MG, 1X/DAY, 21 DAYS
     Route: 048
     Dates: start: 20210719
  6. LETROZOLE [Concomitant]
     Active Substance: LETROZOLE
     Dosage: 2.5 MG, CYCLIC (0-1-0 FOR 28 DAYS)
  7. ZOLEDRONIC ACID [Concomitant]
     Active Substance: ZOLEDRONIC ACID
     Dosage: 4 MG 4 MG IN 100 ML NS IV OVER 30 MINUTES, 3 MONTHLY
     Route: 042
     Dates: start: 202102
  8. FAMOTIDINE [Concomitant]
     Active Substance: FAMOTIDINE
     Dosage: 20 MG, CYCLIC (1-0-1 FOR 28 DAYS)

REACTIONS (4)
  - Cardio-respiratory arrest [Fatal]
  - Neoplasm progression [Unknown]
  - Creatinine renal clearance decreased [Unknown]
  - Localised infection [Unknown]

NARRATIVE: CASE EVENT DATE: 20210226
